FAERS Safety Report 5909500-6 (Version None)
Quarter: 2008Q4

REPORT INFORMATION
  Report Type: 
  Country: None (occurrence: None)
  Receive Date: 20081002
  Receipt Date: 20080918
  Transmission Date: 20090506
  Serious: Yes (Hospitalization)
  Sender: FDA-Public Use
  Company Number: 08P-020-0477076-00

PATIENT
  Age: 7 Month
  Sex: Female
  Weight: 1.67 kg

DRUGS (11)
  1. SYNAGIS [Suspect]
     Indication: DRUG USE FOR UNKNOWN INDICATION
     Dates: start: 20080625, end: 20080625
  2. SYNAGIS [Suspect]
     Indication: DRUG USE FOR UNKNOWN INDICATION
     Dates: start: 20080724, end: 20080724
  3. SYNAGIS [Suspect]
     Indication: DRUG USE FOR UNKNOWN INDICATION
     Dates: start: 20080826
  4. BENZYLPENICILLIN SODIUM [Concomitant]
  5. CLARITHROMYCIN [Concomitant]
  6. IBUPROFEN TABLETS [Concomitant]
  7. SERUM [Concomitant]
  8. AMPICILLIN [Concomitant]
  9. SURFACTANT LIQUID (LIQUID) [Concomitant]
  10. METHYLPREDNISOLONE SODIUM SUCCINATE [Concomitant]
  11. OXYGEN [Concomitant]

REACTIONS (3)
  - BRONCHIOLITIS [None]
  - PNEUMONIA [None]
  - RESPIRATORY DISORDER [None]
